FAERS Safety Report 21350705 (Version 4)
Quarter: 2022Q4

REPORT INFORMATION
  Report Type: Spontaneous
  Country: DE (occurrence: DE)
  Receive Date: 20220919
  Receipt Date: 20221122
  Transmission Date: 20230113
  Serious: Yes (Other)
  Sender: FDA-Public Use
  Company Number: DE-TAKEDA-2022TUS063933

PATIENT
  Age: 53 Year
  Sex: Female

DRUGS (1)
  1. LISDEXAMFETAMINE DIMESYLATE [Suspect]
     Active Substance: LISDEXAMFETAMINE DIMESYLATE
     Indication: Attention deficit hyperactivity disorder
     Dosage: UNK
     Route: 065

REACTIONS (6)
  - Dyskinesia [Recovered/Resolved]
  - Suicidal ideation [Unknown]
  - Trismus [Recovered/Resolved]
  - Impulse-control disorder [Recovered/Resolved]
  - Agitation [Unknown]
  - Depression [Unknown]
